FAERS Safety Report 11290801 (Version 2)
Quarter: 2016Q1

REPORT INFORMATION
  Report Type: Spontaneous
  Country: VE (occurrence: None)
  Receive Date: 20150720
  Receipt Date: 20160216
  Transmission Date: 20160525
  Serious: Yes (Hospitalization, Other)
  Sender: FDA-Public Use
  Company Number: ADR-2015-01345

PATIENT
  Sex: Female

DRUGS (2)
  1. LIORESAL [Suspect]
     Active Substance: BACLOFEN
     Indication: MUSCLE SPASTICITY
     Dosage: 30 MG QD GASTRIC DRIP
  2. LIORESAL [Suspect]
     Active Substance: BACLOFEN
     Indication: MUSCLE SPASTICITY
     Dosage: 10 MG QD GASTRIC DRIP

REACTIONS (25)
  - Cerebral disorder [None]
  - Hypokinesia [None]
  - Mobility decreased [None]
  - Skin graft failure [None]
  - Aphasia [None]
  - Device related infection [None]
  - General physical health deterioration [None]
  - Amnesia [None]
  - Feeling abnormal [None]
  - Fall [None]
  - Loss of consciousness [None]
  - Cerebrovascular disorder [None]
  - Injury [None]
  - Muscle contracture [None]
  - Musculoskeletal stiffness [None]
  - Haemorrhage intracranial [None]
  - Muscle spasms [None]
  - Muscle spasticity [None]
  - Respiratory tract infection [None]
  - Bedridden [None]
  - Performance status decreased [None]
  - Pneumonia [None]
  - Intracranial pressure increased [None]
  - Cardiovascular disorder [None]
  - Accident [None]
